FAERS Safety Report 7789609-5 (Version None)
Quarter: 2011Q3

REPORT INFORMATION
  Report Type: 
  Country: None (occurrence: None)
  Receive Date: 20110930
  Receipt Date: 20110927
  Transmission Date: 20111222
  Serious: Yes (Hospitalization, Other)
  Sender: FDA-Public Use
  Company Number: US-PFIZER INC-2011143775

PATIENT
  Age: 55 Year
  Sex: Male

DRUGS (5)
  1. LIPITOR [Concomitant]
     Indication: BLOOD CHOLESTEROL INCREASED
     Dosage: UNK
     Dates: start: 20070809, end: 20090711
  2. CYMBALTA [Concomitant]
     Indication: DEPRESSION
     Dosage: UNK
     Dates: start: 20070925, end: 20090624
  3. CHANTIX [Suspect]
     Indication: SMOKING CESSATION THERAPY
     Dosage: STARTER PACK
     Dates: start: 20081120, end: 20090301
  4. CYMBALTA [Concomitant]
     Indication: GENERALISED ANXIETY DISORDER
  5. NEXIUM [Concomitant]
     Indication: GASTROOESOPHAGEAL REFLUX DISEASE
     Dosage: UNK
     Dates: start: 20070810, end: 20090729

REACTIONS (5)
  - SUICIDE ATTEMPT [None]
  - DEPRESSION [None]
  - MENTAL DISORDER [None]
  - EMOTIONAL DISTRESS [None]
  - ANXIETY [None]
